FAERS Safety Report 17201596 (Version 3)
Quarter: 2020Q1

REPORT INFORMATION
  Report Type: Report from Study
  Country: CN (occurrence: CN)
  Receive Date: 20191226
  Receipt Date: 20200121
  Transmission Date: 20200409
  Serious: Yes (Hospitalization)
  Sender: FDA-Public Use
  Company Number: CN-PFIZER INC-2019545033

PATIENT
  Age: 45 Year
  Sex: Female
  Weight: 65 kg

DRUGS (17)
  1. METOCLOPRAMIDE DIHYDROCHLORIDE [Concomitant]
     Indication: PROPHYLAXIS
     Dosage: 10 MG, 1X/DAY
     Route: 041
     Dates: start: 20191206, end: 20191212
  2. SODIUM BICARBONATE. [Concomitant]
     Active Substance: SODIUM BICARBONATE
     Indication: PROPHYLAXIS
  3. LIDOCAINE HYDROCHLORIDE. [Concomitant]
     Active Substance: LIDOCAINE HYDROCHLORIDE
     Indication: LOCAL ANAESTHESIA
     Dosage: 10 ML, 1X/DAY (ROUTE OF ADMINISTRATION REPORTED AS SURFACE ANESTHESIA)
     Dates: start: 20191211, end: 20191211
  4. PLACEBO [Suspect]
     Active Substance: UNSPECIFIED INGREDIENT
     Indication: ACUTE MYELOID LEUKAEMIA
     Dosage: UNK UNK, 1X/DAY
     Route: 048
     Dates: start: 20191016, end: 20191019
  5. SODIUM BICARBONATE. [Concomitant]
     Active Substance: SODIUM BICARBONATE
     Indication: BLOOD ALKALINISATION THERAPY
     Dosage: 40 ML, 2X/DAY
     Route: 041
     Dates: start: 20191206, end: 20191212
  6. RED BLOOD CELLS [Concomitant]
     Active Substance: HUMAN RED BLOOD CELL
     Indication: ANAEMIA
     Dosage: 1 IU, 1X/DAY, RH POSITIVE RED BLOOD CELL SUSPENSION
     Route: 041
     Dates: start: 20191207, end: 20191207
  7. CYTARABINE. [Suspect]
     Active Substance: CYTARABINE
     Indication: ACUTE MYELOID LEUKAEMIA
     Dosage: 171 MG, 1X/DAY
     Route: 041
     Dates: start: 20191016, end: 20191022
  8. RECOMBINANT HUMAN EPIDERMAL GROWTH FACTOR DERIVATIVE [Concomitant]
     Indication: NASAL MUCOSAL DISORDER
     Dosage: 0.5 G, 1X/DAY, EXTERNAL USE
     Dates: start: 20191211
  9. DAUNORUBICIN HCL [Suspect]
     Active Substance: DAUNORUBICIN HYDROCHLORIDE
     Indication: ACUTE MYELOID LEUKAEMIA
     Dosage: 102.6 MG, 1X/DAY
     Route: 041
     Dates: start: 20191016, end: 20191018
  10. DAUNORUBICIN HCL [Suspect]
     Active Substance: DAUNORUBICIN HYDROCHLORIDE
     Dosage: 102 MG, 1X/DAY
     Route: 041
     Dates: start: 20191206, end: 20191208
  11. TROPISETRON HYDROCHLORIDE [Concomitant]
     Active Substance: TROPISETRON HYDROCHLORIDE
     Indication: PROPHYLAXIS
     Dosage: 4 MG, 1X/DAY
     Route: 041
     Dates: start: 20191206, end: 20191212
  12. RED BLOOD CELLS [Concomitant]
     Active Substance: HUMAN RED BLOOD CELL
     Dosage: 2 IU, 1X/DAY, RH POSITIVE RED BLOOD CELL SUSPENSION
     Route: 041
     Dates: start: 20191212, end: 20191212
  13. CYTARABINE. [Suspect]
     Active Substance: CYTARABINE
     Dosage: 170 MG, 1X/DAY
     Route: 041
     Dates: start: 20191206, end: 20191212
  14. TETRACAINE HYDROCHLORIDE. [Concomitant]
     Active Substance: TETRACAINE HYDROCHLORIDE
     Indication: LOCAL ANAESTHESIA
     Dosage: 5 ML, 1X/DAY (ROUTE OF ADMINISTRATION REPORTED AS SURFACE ANESTHESIA)
     Dates: start: 20191211, end: 20191211
  15. CHLORTETRACYCLINE HYDROCHLORIDE [Concomitant]
     Active Substance: CHLORTETRACYCLINE HYDROCHLORIDE
     Indication: INFECTION PROPHYLAXIS
     Dosage: 0.1 G, 1X/DAY, EXTERNAL USE
     Dates: start: 20191211
  16. PLACEBO [Suspect]
     Active Substance: UNSPECIFIED INGREDIENT
     Dosage: UNK UNK, 1X/DAY
     Route: 048
     Dates: start: 20191115
  17. ADRENALINE HYDROCHLORIDE [Concomitant]
     Active Substance: EPINEPHRINE HYDROCHLORIDE
     Indication: PROPHYLAXIS
     Dosage: 1 ML, 1X/DAY (ROUTE OF ADMINISTRATION REPORTED AS SURFACE ANESTHESIA)
     Dates: start: 20191211, end: 20191211

REACTIONS (1)
  - Neutropenia [Not Recovered/Not Resolved]

NARRATIVE: CASE EVENT DATE: 20191212
